FAERS Safety Report 15344013 (Version 1)
Quarter: 2018Q3

REPORT INFORMATION
  Report Type: Spontaneous
  Country: US (occurrence: US)
  Receive Date: 20180903
  Receipt Date: 20180903
  Transmission Date: 20181010
  Serious: No
  Sender: FDA-Public Use
  Company Number: US-009507513-1808USA011640

PATIENT
  Age: 24 Year
  Sex: Female
  Weight: 107.48 kg

DRUGS (1)
  1. NEXPLANON [Suspect]
     Active Substance: ETONOGESTREL
     Indication: CONTRACEPTION
     Dosage: ONE IMPLANT IN THE LEFT ARM
     Route: 059
     Dates: start: 201704

REACTIONS (5)
  - Nausea [Not Recovered/Not Resolved]
  - Amenorrhoea [Recovered/Resolved]
  - Headache [Not Recovered/Not Resolved]
  - Metrorrhagia [Not Recovered/Not Resolved]
  - Back pain [Not Recovered/Not Resolved]

NARRATIVE: CASE EVENT DATE: 201704
